FAERS Safety Report 14781656 (Version 1)
Quarter: 2018Q2

REPORT INFORMATION
  Report Type: Spontaneous
  Country: US (occurrence: US)
  Receive Date: 20180420
  Receipt Date: 20180420
  Transmission Date: 20180711
  Serious: No
  Sender: FDA-Public Use
  Company Number: US-B.I. PHARMACEUTICALS,INC./RIDGEFIELD-2018-BI-020801

PATIENT
  Age: 56 Year
  Sex: Female

DRUGS (1)
  1. OFEV [Suspect]
     Active Substance: NINTEDANIB
     Indication: IDIOPATHIC PULMONARY FIBROSIS
     Route: 048
     Dates: start: 201802

REACTIONS (5)
  - Pulmonary air leakage [Unknown]
  - Fatigue [Unknown]
  - Chest pain [Unknown]
  - Dyspnoea [Unknown]
  - Chest X-ray abnormal [Recovered/Resolved]

NARRATIVE: CASE EVENT DATE: 201803
